FAERS Safety Report 15560710 (Version 2)
Quarter: 2018Q4

REPORT INFORMATION
  Report Type: Spontaneous
  Country: US (occurrence: US)
  Receive Date: 20181029
  Receipt Date: 20181130
  Transmission Date: 20190205
  Serious: No
  Sender: FDA-Public Use
  Company Number: US-PFIZER INC-2018440507

PATIENT

DRUGS (1)
  1. LYRICA [Suspect]
     Active Substance: PREGABALIN
     Indication: NEURALGIA
     Dosage: 60 DF (TOTAL; TABLETS), UNK
     Dates: start: 20180812, end: 20180910

REACTIONS (3)
  - Rash [Unknown]
  - Drug ineffective [Unknown]
  - Pruritus [Unknown]

NARRATIVE: CASE EVENT DATE: 2018
